FAERS Safety Report 24006040 (Version 1)
Quarter: 2024Q2

REPORT INFORMATION
  Report Type: Spontaneous
  Country: ES (occurrence: ES)
  Receive Date: 20240624
  Receipt Date: 20240624
  Transmission Date: 20240716
  Serious: Yes (Death, Other)
  Sender: FDA-Public Use
  Company Number: ES-SANDOZ-SDZ2024ES057019

PATIENT

DRUGS (6)
  1. AZACITIDINE [Suspect]
     Active Substance: AZACITIDINE
     Indication: Acute myeloid leukaemia
     Dosage: 75 MILLIGRAM/SQ. METER FOR 7 DAYS OF 28 DAYS
     Route: 058
  2. IADADEMSTAT [Suspect]
     Active Substance: IADADEMSTAT
     Indication: Acute myeloid leukaemia
     Dosage: 60 MICROGRAM/SQ. METER, QD (WITH DE-ESCALATION TO 60 MUG/M2 PER DAY)
     Route: 048
  3. IADADEMSTAT [Suspect]
     Active Substance: IADADEMSTAT
     Dosage: FOR 5 DAYS ON AND 2 DAYS OFF WEEKLY
     Route: 048
  4. IADADEMSTAT [Suspect]
     Active Substance: IADADEMSTAT
     Dosage: 140 MICROGRAM/SQ. METER, QD (ESCALATION UP TO 140 MUG/M2 PER DAY)
     Route: 048
  5. IADADEMSTAT [Suspect]
     Active Substance: IADADEMSTAT
     Dosage: 20 MICROGRAM, QD (20 ?G OF IADADEMSTAT FREE BASE PER ML)
     Route: 048
  6. IADADEMSTAT [Suspect]
     Active Substance: IADADEMSTAT
     Dosage: 90 MICROGRAM/SQ. METER, QD (90 MUG/M2 PER DAY)
     Route: 048

REACTIONS (1)
  - Haemorrhage intracranial [Fatal]
